FAERS Safety Report 19198593 (Version 2)
Quarter: 2021Q4

REPORT INFORMATION
  Report Type: Spontaneous
  Country: JP (occurrence: JP)
  Receive Date: 20210430
  Receipt Date: 20211004
  Transmission Date: 20220303
  Serious: Yes (Congenital Anomaly)
  Sender: FDA-Public Use
  Company Number: JP-ASTELLAS-2021JP007924

PATIENT

DRUGS (1)
  1. PROGRAF [Suspect]
     Active Substance: TACROLIMUS
     Indication: Prophylaxis against transplant rejection
     Dosage: 2 MG/DAY, UNKNOWN FREQ.
     Route: 064
     Dates: start: 20180510

REACTIONS (2)
  - Velopharyngeal incompetence [Unknown]
  - Foetal exposure during pregnancy [Unknown]
